FAERS Safety Report 10244480 (Version 3)
Quarter: 2014Q4

REPORT INFORMATION
  Report Type: Spontaneous
  Country: US (occurrence: None)
  Receive Date: 20140617
  Receipt Date: 20141003
  Transmission Date: 20150528
  Serious: No
  Sender: FDA-Public Use
  Company Number: 2014CT000046

PATIENT
  Age: 50 Year
  Sex: Female
  Weight: 90.72 kg

DRUGS (8)
  1. KORLYM [Suspect]
     Active Substance: MIFEPRISTONE
     Indication: CUSHING^S SYNDROME
     Route: 048
     Dates: start: 20120911, end: 2013
  2. SPIRONOLACTONE. [Concomitant]
     Active Substance: SPIRONOLACTONE
  3. GABAPENTIN. [Concomitant]
     Active Substance: GABAPENTIN
  4. NORVASC [Concomitant]
     Active Substance: AMLODIPINE BESYLATE
  5. METFORMIN [Concomitant]
     Active Substance: METFORMIN HYDROCHLORIDE
  6. LISINOPRIL. [Concomitant]
     Active Substance: LISINOPRIL
  7. EFFEXOR [Concomitant]
     Active Substance: VENLAFAXINE HYDROCHLORIDE
  8. LANTUS [Concomitant]
     Active Substance: INSULIN GLARGINE

REACTIONS (15)
  - Depressed mood [None]
  - Polyneuropathy [None]
  - Weight decreased [None]
  - Cervical vertebral fracture [None]
  - Endometrial hypertrophy [None]
  - Uterine leiomyoma [None]
  - Cervix disorder [None]
  - Drug ineffective [None]
  - Crying [None]
  - Vaginal haemorrhage [None]
  - Mass [None]
  - Mood swings [None]
  - Blood pressure decreased [None]
  - Nausea [None]
  - Uterine haemorrhage [None]
